FAERS Safety Report 9950963 (Version 1)
Quarter: 2014Q1

REPORT INFORMATION
  Report Type: Spontaneous
  Country: US (occurrence: BR)
  Receive Date: 20140304
  Receipt Date: 20140304
  Transmission Date: 20141002
  Serious: Yes (Other)
  Sender: FDA-Public Use
  Company Number: BR-FRI-1000054938

PATIENT
  Sex: Female

DRUGS (1)
  1. ROFLUMILAST [Suspect]
     Route: 048
     Dates: start: 201306, end: 201309

REACTIONS (2)
  - Lower gastrointestinal haemorrhage [Unknown]
  - Weight decreased [Unknown]
